FAERS Safety Report 17292721 (Version 1)
Quarter: 2020Q1

REPORT INFORMATION
  Report Type: Report from Study
  Country: CO (occurrence: CO)
  Receive Date: 20200121
  Receipt Date: 20200121
  Transmission Date: 20200409
  Serious: Yes (Death)
  Sender: FDA-Public Use
  Company Number: CO-BAYER-2020-002501

PATIENT
  Sex: Female

DRUGS (1)
  1. ADEMPAS [Suspect]
     Active Substance: RIOCIGUAT
     Indication: PULMONARY HYPERTENSION
     Dosage: 1 DF, Q8HR
     Dates: start: 20160203

REACTIONS (4)
  - Dyspnoea [Fatal]
  - Diarrhoea [Fatal]
  - Pneumonia [Fatal]
  - Immunodeficiency [Fatal]
